FAERS Safety Report 5691376-6 (Version None)
Quarter: 2008Q2

REPORT INFORMATION
  Report Type: 
  Country: None (occurrence: None)
  Receive Date: 20080402
  Receipt Date: 20080320
  Transmission Date: 20081010
  Serious: Yes (Hospitalization, Other)
  Sender: FDA-Public Use
  Company Number: PHNU2008DE01352

PATIENT
  Age: 57 Year
  Sex: Female
  Weight: 59 kg

DRUGS (1)
  1. FEMARA [Suspect]
     Indication: BREAST CANCER
     Dosage: 2.5 MG, QD
     Route: 048
     Dates: start: 20070601

REACTIONS (17)
  - ARTERIOSCLEROSIS [None]
  - ATAXIA [None]
  - CARPAL TUNNEL SYNDROME [None]
  - DIPLOPIA [None]
  - DIZZINESS [None]
  - DYSPNOEA [None]
  - ELECTROCARDIOGRAM AMBULATORY ABNORMAL [None]
  - EYELID PTOSIS [None]
  - FACIAL PARESIS [None]
  - HEADACHE [None]
  - HYPERLIPIDAEMIA [None]
  - IIIRD NERVE DISORDER [None]
  - MALAISE [None]
  - NYSTAGMUS [None]
  - PARADOXICAL EMBOLISM [None]
  - URINARY TRACT INFECTION [None]
  - VENTRICULAR EXTRASYSTOLES [None]
